FAERS Safety Report 26212079 (Version 1)
Quarter: 2025Q4

REPORT INFORMATION
  Report Type: Spontaneous
  Country: CN (occurrence: CN)
  Receive Date: 20251230
  Receipt Date: 20251230
  Transmission Date: 20260117
  Serious: Yes (Other)
  Sender: Kenvue
  Company Number: CN-KENVUE-20251210386

PATIENT
  Age: 1 Month
  Weight: 0.98 kg

DRUGS (1)
  1. MOTRIN INFANTS [Suspect]
     Active Substance: IBUPROFEN
     Indication: Patent ductus arteriosus
     Dosage: 0.24 MILLILITER, ONCE A DAY

REACTIONS (2)
  - Abdominal distension [Recovering/Resolving]
  - Off label use [Unknown]
